FAERS Safety Report 5139541-0 (Version None)
Quarter: 2006Q4

REPORT INFORMATION
  Report Type: 
  Country: None (occurrence: None)
  Receive Date: 20061024
  Receipt Date: 20061011
  Transmission Date: 20070319
  Serious: Yes (Hospitalization, Other)
  Sender: FDA-Public Use
  Company Number: 2006EN000006

PATIENT
  Age: 43 Year
  Sex: Male
  Weight: 90.7194 kg

DRUGS (1)
  1. OPANA ER [Suspect]
     Indication: PAIN
     Dosage: 5 MG; Q4H; PO
     Route: 048
     Dates: start: 20060912, end: 20060901

REACTIONS (4)
  - DRUG DEPENDENCE [None]
  - DRUG DISPENSING ERROR [None]
  - HALLUCINATION [None]
  - LOSS OF CONSCIOUSNESS [None]
